FAERS Safety Report 4462929-8 (Version None)
Quarter: 2004Q3

REPORT INFORMATION
  Report Type: 
  Country: None (occurrence: None)
  Receive Date: 20040927
  Receipt Date: 20040909
  Transmission Date: 20050211
  Serious: Yes (Life-Threatening, Hospitalization)
  Sender: FDA-Public Use
  Company Number: 8006864

PATIENT
  Age: 31 Year
  Sex: Female
  Weight: 48 kg

DRUGS (5)
  1. KEPPRA [Suspect]
     Dosage: 3000 MG /D
     Dates: start: 20030101
  2. SABRIL [Suspect]
     Dosage: 2000 MG /D PO
     Route: 048
     Dates: start: 20030101
  3. TRILEPTAL [Suspect]
     Dosage: 1500 MG /D PO
     Route: 048
     Dates: start: 20030101
  4. CLONAZEPAM [Concomitant]
  5. MEDROL [Concomitant]

REACTIONS (5)
  - AGRANULOCYTOSIS [None]
  - ANAEMIA [None]
  - CONDITION AGGRAVATED [None]
  - LEUKOPENIA [None]
  - SYSTEMIC LUPUS ERYTHEMATOSUS [None]
